FAERS Safety Report 10566380 (Version 2)
Quarter: 2014Q4

REPORT INFORMATION
  Report Type: Spontaneous
  Country: US (occurrence: US)
  Receive Date: 20141105
  Receipt Date: 20141109
  Transmission Date: 20150529
  Serious: Yes (Life-Threatening, Hospitalization)
  Sender: FDA-Public Use
  Company Number: US-BRISTOL-MYERS SQUIBB COMPANY-21531652

PATIENT
  Age: 44 Year
  Sex: Male

DRUGS (2)
  1. NORVIR [Suspect]
     Active Substance: RITONAVIR
  2. REYATAZ [Suspect]
     Active Substance: ATAZANAVIR SULFATE

REACTIONS (2)
  - Drug dose omission [Unknown]
  - Beta haemolytic streptococcal infection [Recovered/Resolved]
